FAERS Safety Report 5927000-4 (Version None)
Quarter: 2008Q4

REPORT INFORMATION
  Report Type: 
  Country: None (occurrence: None)
  Receive Date: 20081021
  Receipt Date: 20081021
  Transmission Date: 20090506
  Serious: Yes (Other)
  Sender: FDA-Public Use
  Company Number: None

PATIENT
  Age: 30 Year
  Sex: Female
  Weight: 65.7716 kg

DRUGS (1)
  1. MIRENA [Suspect]
     Indication: CONTRACEPTION
     Dates: start: 20070701, end: 20081015

REACTIONS (4)
  - ABDOMINAL DISTENSION [None]
  - ACNE [None]
  - ALOPECIA [None]
  - SKIN BURNING SENSATION [None]
